FAERS Safety Report 4809884-6 (Version None)
Quarter: 2005Q4

REPORT INFORMATION
  Report Type: 
  Country: None (occurrence: None)
  Receive Date: 20051024
  Receipt Date: 20051010
  Transmission Date: 20060501
  Serious: Yes (Hospitalization)
  Sender: FDA-Public Use
  Company Number: 2005BI014329

PATIENT
  Sex: Female
  Weight: 70.3075 kg

DRUGS (2)
  1. AVONEX [Suspect]
     Indication: MULTIPLE SCLEROSIS
     Dosage: 30 UG;QW; IM
     Route: 030
     Dates: start: 20000101
  2. AVONEX [Suspect]
     Indication: MULTIPLE SCLEROSIS
     Dosage: 30 UG;QW; IM
     Route: 030

REACTIONS (7)
  - ASTHMA [None]
  - CARDIAC DISORDER [None]
  - CARDIOMEGALY [None]
  - DYSPNOEA [None]
  - EMPHYSEMA [None]
  - SILENT MYOCARDIAL INFARCTION [None]
  - SYNCOPE [None]
